FAERS Safety Report 7064112-9 (Version None)
Quarter: 2010Q4

REPORT INFORMATION
  Report Type: 
  Country: None (occurrence: None)
  Receive Date: 20101019
  Receipt Date: 20101005
  Transmission Date: 20110411
  Serious: Yes (Other)
  Sender: FDA-Public Use
  Company Number: 0213991

PATIENT
  Age: 40 Year
  Sex: Female

DRUGS (1)
  1. TACHOSIL [Suspect]
     Indication: PANCREATECTOMY
     Dates: start: 20100503, end: 20100503

REACTIONS (3)
  - LOCALISED INTRAABDOMINAL FLUID COLLECTION [None]
  - PERIPANCREATIC FLUID COLLECTION [None]
  - THROMBOCYTOSIS [None]
